FAERS Safety Report 4717822-X (Version None)
Quarter: 2005Q3

REPORT INFORMATION
  Report Type: 
  Country: None (occurrence: None)
  Receive Date: 20050718
  Receipt Date: 20050718
  Transmission Date: 20060218
  Serious: Yes (Hospitalization, Other)
  Sender: FDA-Public Use
  Company Number: None

PATIENT
  Sex: Female
  Weight: 69.5 kg

DRUGS (3)
  1. CPT-11 [Suspect]
     Indication: GLIOBLASTOMA MULTIFORME
     Dates: start: 20050609, end: 20050623
  2. TEMODAR [Suspect]
     Dates: start: 20050609, end: 20050613
  3. DEXAMETHASONE [Concomitant]

REACTIONS (8)
  - CONVULSION [None]
  - COUGH [None]
  - DYSPNOEA [None]
  - LEUKOPENIA [None]
  - LYMPHOPENIA [None]
  - OPPORTUNISTIC INFECTION [None]
  - PNEUMOCYSTIS JIROVECI PNEUMONIA [None]
  - PYREXIA [None]
